FAERS Safety Report 6905337-X (Version None)
Quarter: 2010Q3

REPORT INFORMATION
  Report Type: 
  Country: None (occurrence: None)
  Receive Date: 20100708
  Receipt Date: 20090706
  Transmission Date: 20110219
  Serious: Yes (Other)
  Sender: FDA-Public Use
  Company Number: 2009169798

PATIENT
  Sex: Male
  Weight: 112.5 kg

DRUGS (4)
  1. CHANTIX [Suspect]
     Dosage: TOBACCO CESSATION (TOBACCO USER)
  2. CARDIOVASCULAR SYSTEM DRUGS [Concomitant]
  3. ATENOLOL [Concomitant]
  4. METFORMIN HCL [Concomitant]

REACTIONS (1)
  - ATRIAL FIBRILLATION [None]
